FAERS Safety Report 24067467 (Version 3)
Quarter: 2024Q3

REPORT INFORMATION
  Report Type: Report from Study
  Country: FR (occurrence: FR)
  Receive Date: 20240709
  Receipt Date: 20240719
  Transmission Date: 20241016
  Serious: Yes (Death)
  Sender: ELI LILLY AND CO
  Company Number: FR-MYLANLABS-2024M1062271

PATIENT
  Age: 35 Year
  Sex: Male

DRUGS (3)
  1. TADALAFIL [Suspect]
     Active Substance: TADALAFIL
     Indication: Product used for unknown indication
     Dosage: UNK UNK, UNKNOWN
     Route: 065
  2. OXAZEPAM [Suspect]
     Active Substance: OXAZEPAM
     Indication: Product used for unknown indication
     Dosage: UNK, UNKNOWN
     Route: 065
  3. MIANSERIN [Suspect]
     Active Substance: MIANSERIN
     Indication: Product used for unknown indication
     Dosage: UNK, UNKNOWN
     Route: 065

REACTIONS (1)
  - Drug abuse [Fatal]
